FAERS Safety Report 17664168 (Version 2)
Quarter: 2020Q2

REPORT INFORMATION
  Report Type: Spontaneous
  Country: US (occurrence: US)
  Receive Date: 20200414
  Receipt Date: 20200523
  Transmission Date: 20200713
  Serious: Yes (Death)
  Sender: FDA-Public Use
  Company Number: US-ROCHE-2581220

PATIENT
  Age: 75 Year
  Sex: Female

DRUGS (1)
  1. ESBRIET [Suspect]
     Active Substance: PIRFENIDONE
     Indication: IDIOPATHIC PULMONARY FIBROSIS
     Route: 048
     Dates: start: 20180824

REACTIONS (3)
  - Diarrhoea [Unknown]
  - Ovarian cancer [Fatal]
  - Weight decreased [Unknown]

NARRATIVE: CASE EVENT DATE: 201909
